FAERS Safety Report 16885496 (Version 1)
Quarter: 2019Q4

REPORT INFORMATION
  Report Type: Spontaneous
  Country: DE (occurrence: DE)
  Receive Date: 20191004
  Receipt Date: 20191004
  Transmission Date: 20200122
  Serious: Yes (Other)
  Sender: FDA-Public Use
  Company Number: DE-AMGEN-DEUSP2019160032

PATIENT
  Age: 15 Year
  Sex: Male

DRUGS (1)
  1. XGEVA [Suspect]
     Active Substance: DENOSUMAB
     Indication: ANEURYSMAL BONE CYST
     Dosage: UNK
     Route: 065
     Dates: start: 2015

REACTIONS (6)
  - Renal impairment [Unknown]
  - Nephrocalcinosis [Unknown]
  - Facial paresis [Unknown]
  - Off label use [Unknown]
  - Hypercalcaemia [Unknown]
  - Pain in jaw [Unknown]

NARRATIVE: CASE EVENT DATE: 2019
